FAERS Safety Report 6788765-5 (Version None)
Quarter: 2010Q2

REPORT INFORMATION
  Report Type: 
  Country: None (occurrence: None)
  Receive Date: 20100623
  Receipt Date: 20080504
  Transmission Date: 20101027
  Serious: No
  Sender: FDA-Public Use
  Company Number: US-PFIZER INC-2008040200

PATIENT
  Age: 35 Year

DRUGS (1)
  1. GEODON [Suspect]
     Indication: SCHIZOPHRENIA

REACTIONS (1)
  - PERSONALITY CHANGE [None]
